FAERS Safety Report 6111141-5 (Version None)
Quarter: 2009Q1

REPORT INFORMATION
  Report Type: 
  Country: None (occurrence: None)
  Receive Date: 20090311
  Receipt Date: 20090303
  Transmission Date: 20090719
  Serious: Yes (Other)
  Sender: FDA-Public Use
  Company Number: US-BAYER-200813478BCC

PATIENT
  Age: 88 Year
  Sex: Male

DRUGS (2)
  1. ASPIRIN [Suspect]
     Dosage: TOTAL DAILY DOSE: 325 MG  UNIT DOSE: 325 MG
     Route: 048
     Dates: start: 19750101, end: 20050101
  2. UNKNOWN DRUG [Suspect]

REACTIONS (2)
  - CEREBROVASCULAR ACCIDENT [None]
  - VISUAL FIELD DEFECT [None]
